FAERS Safety Report 9820975 (Version 1)
Quarter: 2014Q1

REPORT INFORMATION
  Report Type: Spontaneous
  Country: GB (occurrence: GB)
  Receive Date: 20140116
  Receipt Date: 20140116
  Transmission Date: 20141002
  Serious: Yes (Hospitalization)
  Sender: FDA-Public Use
  Company Number: GB-ASTRAZENECA-2014SE01832

PATIENT
  Age: 82 Year
  Sex: Male

DRUGS (10)
  1. TICAGRELOR [Suspect]
     Indication: MYOCARDIAL INFARCTION
     Route: 048
     Dates: start: 20130122, end: 20130623
  2. ASPIRIN [Concomitant]
  3. ATORVASTATIN [Concomitant]
  4. BUMETANIDE [Concomitant]
  5. EPLERENONE [Concomitant]
  6. LANSOPRAZOLE [Concomitant]
  7. METFORMIN [Concomitant]
  8. NEBIVOLOL [Concomitant]
  9. NOVOMIX [Concomitant]
  10. RAMIPRIL [Concomitant]

REACTIONS (2)
  - Urinary retention [Unknown]
  - Haematuria [Recovered/Resolved]
